FAERS Safety Report 24549035 (Version 1)
Quarter: 2024Q4

REPORT INFORMATION
  Report Type: Spontaneous
  Country: CA (occurrence: CA)
  Receive Date: 20241025
  Receipt Date: 20241025
  Transmission Date: 20250114
  Serious: Yes (Other)
  Sender: RANBAXY
  Company Number: CA-SUN PHARMACEUTICAL INDUSTRIES LTD-2024R1-475149

PATIENT
  Age: 83 Year
  Sex: Male

DRUGS (3)
  1. VALACYCLOVIR HYDROCHLORIDE [Suspect]
     Active Substance: VALACYCLOVIR HYDROCHLORIDE
     Indication: Herpes zoster
     Dosage: 1000 MILLIGRAM, TID
     Route: 048
  2. GANCICLOVIR [Suspect]
     Active Substance: GANCICLOVIR
     Indication: Herpes zoster
     Dosage: UNK (2 MG)
  3. FOSCARNET [Suspect]
     Active Substance: FOSCARNET
     Indication: Herpes zoster
     Dosage: UNK (2.4 MG)
     Route: 065

REACTIONS (2)
  - Therapy non-responder [Unknown]
  - Disease recurrence [Unknown]
